FAERS Safety Report 6968606-3 (Version None)
Quarter: 2010Q3

REPORT INFORMATION
  Report Type: 
  Country: None (occurrence: None)
  Receive Date: 20100907
  Receipt Date: 20100901
  Transmission Date: 20110219
  Serious: Yes (Other)
  Sender: FDA-Public Use
  Company Number: US-ROCHE-725104

PATIENT
  Sex: Male
  Weight: 95.3 kg

DRUGS (7)
  1. ROCEPHIN [Suspect]
     Route: 042
     Dates: start: 20100701
  2. ROCEPHIN [Suspect]
     Route: 042
  3. ROCEPHIN [Suspect]
     Route: 042
  4. DOXYCYCLINE [Concomitant]
  5. FLAGYL [Concomitant]
  6. TOPROL-XL [Concomitant]
  7. RHYTHMOL [Concomitant]

REACTIONS (7)
  - ABASIA [None]
  - ASTHENIA [None]
  - DIZZINESS [None]
  - HEADACHE [None]
  - NERVOUS SYSTEM DISORDER [None]
  - ORAL CANDIDIASIS [None]
  - SPEECH DISORDER [None]
